FAERS Safety Report 24879165 (Version 1)
Quarter: 2025Q1

REPORT INFORMATION
  Report Type: Spontaneous
  Country: US (occurrence: US)
  Receive Date: 20250123
  Receipt Date: 20250123
  Transmission Date: 20250409
  Serious: No
  Sender: CATALYST PHARMA
  Company Number: US-CATALYST PHARMACEUTICALS, INC-US-CATA-24-00800

PATIENT
  Age: 41 Year
  Sex: Male
  Weight: 53.515 kg

DRUGS (9)
  1. FIRDAPSE [Suspect]
     Active Substance: AMIFAMPRIDINE PHOSPHATE
     Indication: Myasthenic syndrome
     Dosage: 1 TABLET 3 TIMES PER DAY
     Route: 048
     Dates: start: 20240719, end: 20240724
  2. HERBALS\WITHANIA SOMNIFERA ROOT [Concomitant]
     Active Substance: HERBALS\WITHANIA SOMNIFERA ROOT
     Indication: Product used for unknown indication
     Route: 065
  3. BEET ROOT [Concomitant]
     Indication: Product used for unknown indication
     Dosage: 100 MG DAILY
     Route: 065
  4. BLACK SEED OIL [Concomitant]
     Indication: Product used for unknown indication
     Dosage: 1 TSP DAILY
     Route: 065
  5. GINGER [Concomitant]
     Active Substance: GINGER
     Indication: Product used for unknown indication
     Dosage: 550 MG DAILY
     Route: 048
  6. MACA [Concomitant]
     Indication: Product used for unknown indication
     Dosage: 500 MG DAILY
     Route: 048
  7. MAGNESIUM [Concomitant]
     Active Substance: MAGNESIUM
     Indication: Product used for unknown indication
     Dosage: 250 MG DAILY
     Route: 065
  8. PROTONIX [Concomitant]
     Active Substance: PANTOPRAZOLE SODIUM
     Indication: Product used for unknown indication
     Dosage: 40 MG DAILY
     Route: 065
  9. VITAMIN B12 [Concomitant]
     Active Substance: CYANOCOBALAMIN
     Indication: Product used for unknown indication
     Dosage: 1000 MCG DAILY
     Route: 065

REACTIONS (1)
  - Therapy cessation [Unknown]

NARRATIVE: CASE EVENT DATE: 20240724
